FAERS Safety Report 24367921 (Version 1)
Quarter: 2024Q3

REPORT INFORMATION
  Report Type: Spontaneous
  Country: DE (occurrence: DE)
  Receive Date: 20240926
  Receipt Date: 20240926
  Transmission Date: 20241017
  Serious: Yes (Other)
  Sender: BRAEBURN PHARMACEUTICALS
  Company Number: DE-CAMURUS AB-DE-CAM-24-00946

PATIENT
  Age: 28 Year
  Sex: Female

DRUGS (2)
  1. BUPRENORPHINE [Suspect]
     Active Substance: BUPRENORPHINE
     Indication: Product used for unknown indication
     Dosage: 32 MILLIGRAM, WEEKLY
     Route: 065
     Dates: start: 2023
  2. BUPRENORPHINE [Suspect]
     Active Substance: BUPRENORPHINE
     Dosage: 128 MILLIGRAM, MONTHLY
     Route: 065

REACTIONS (2)
  - Abortion [Unknown]
  - Maternal exposure during pregnancy [Unknown]
